FAERS Safety Report 5519674-7 (Version None)
Quarter: 2007Q4

REPORT INFORMATION
  Report Type: 
  Country: None (occurrence: None)
  Receive Date: 20071116
  Receipt Date: 20071106
  Transmission Date: 20080405
  Serious: Yes (Life-Threatening)
  Sender: FDA-Public Use
  Company Number: JP-JNJFOC-20070903648

PATIENT
  Sex: Female
  Weight: 40 kg

DRUGS (9)
  1. ITRIZOLE [Suspect]
     Indication: FUNGAL INFECTION
     Route: 041
  2. FAMOTIDINE [Concomitant]
     Route: 041
  3. FUROSEMIDE [Concomitant]
     Route: 041
  4. THYRADIN [Concomitant]
     Route: 048
  5. CALCIUM POLYSTYRENE SULFONATE [Concomitant]
     Route: 048
  6. ASCORBIC ACID [Concomitant]
     Route: 041
  7. PLEVITA [Concomitant]
     Route: 041
  8. PANTETHINE [Concomitant]
     Route: 041
  9. BACTRIM [Concomitant]
     Route: 048

REACTIONS (2)
  - ACUTE RESPIRATORY DISTRESS SYNDROME [None]
  - RASH PAPULAR [None]
